FAERS Safety Report 6430110-9 (Version None)
Quarter: 2009Q4

REPORT INFORMATION
  Report Type: 
  Country: None (occurrence: None)
  Receive Date: 20091106
  Receipt Date: 20091030
  Transmission Date: 20100525
  Serious: No
  Sender: FDA-Public Use
  Company Number: AR-ASTRAZENECA-2009SE23749

PATIENT
  Age: 40 Year
  Sex: Female

DRUGS (1)
  1. ETIASEL XR [Suspect]
     Indication: SCHIZOPHRENIA, PARANOID TYPE
     Route: 048
     Dates: start: 20090801

REACTIONS (1)
  - ANAEMIA [None]
